FAERS Safety Report 8573577-2 (Version None)
Quarter: 2012Q3

REPORT INFORMATION
  Report Type: 
  Country: None (occurrence: None)
  Receive Date: 20120806
  Receipt Date: 20120726
  Transmission Date: 20120928
  Serious: No
  Sender: FDA-Public Use
  Company Number: US-B.I. PHARMACEUTICALS,INC./RIDGEFIELD-2012-BP-17208PF

PATIENT
  Sex: Female

DRUGS (10)
  1. LEVOTHYROXINE SODIUM [Concomitant]
  2. DETROL LA [Concomitant]
     Dosage: 4 MG
  3. SPIRIVA [Suspect]
  4. DIGOXIN [Concomitant]
  5. CITALOPRAM HYDROBROMIDE [Concomitant]
  6. FUROSEMIDE [Concomitant]
  7. TRAZODONE HYDROCHLORIDE [Concomitant]
  8. KLOPEON [Concomitant]
  9. VENTOLIN [Concomitant]
  10. SYMBICORT [Concomitant]

REACTIONS (1)
  - MALAISE [None]
